FAERS Safety Report 6583180-1 (Version None)
Quarter: 2010Q1

REPORT INFORMATION
  Report Type: 
  Country: None (occurrence: None)
  Receive Date: 20100204
  Receipt Date: 20100125
  Transmission Date: 20100710
  Serious: Yes (Death, Life-Threatening)
  Sender: FDA-Public Use
  Company Number: 2009JP006542

PATIENT
  Age: 64 Year
  Sex: Male
  Weight: 75.4 kg

DRUGS (24)
  1. FUNGUARD (MICAFUNGIN) INJECTION [Suspect]
     Indication: ASPERGILLOSIS
     Dosage: 100 MG, UID/QD, IV DRIP
     Route: 041
     Dates: start: 20090619, end: 20090712
  2. FUNGUARD (MICAFUNGIN) INJECTION [Suspect]
     Indication: ORAL CANDIDIASIS
     Dosage: 100 MG, UID/QD, IV DRIP
     Route: 041
     Dates: start: 20090619, end: 20090712
  3. AZACTAM (AZTREONAM) INJECTION [Suspect]
     Indication: ASPERGILLOSIS
     Dosage: 1 G, QID, IV DRIP
     Route: 041
     Dates: start: 20090708, end: 20090712
  4. AZACTAM (AZTREONAM) INJECTION [Suspect]
     Indication: FEBRILE NEUTROPENIA
     Dosage: 1 G, QID, IV DRIP
     Route: 041
     Dates: start: 20090708, end: 20090712
  5. LINTACIN (CLINDAMYCIN PHOSPHATE) INJECTION [Suspect]
     Indication: ASPERGILLOSIS
     Dosage: 1200 MG, BID, IV DRIP
     Route: 041
     Dates: start: 20090708, end: 20090711
  6. LINTACIN (CLINDAMYCIN PHOSPHATE) INJECTION [Suspect]
     Indication: FEBRILE NEUTROPENIA
     Dosage: 1200 MG, BID, IV DRIP
     Route: 041
     Dates: start: 20090708, end: 20090711
  7. ZOSYN [Suspect]
     Indication: ASPERGILLOSIS
     Dosage: 4.5 G, BID, IV DRIP
     Route: 041
     Dates: start: 20090712, end: 20090712
  8. ZOSYN [Suspect]
     Indication: FEBRILE NEUTROPENIA
     Dosage: 4.5 G, BID, IV DRIP
     Route: 041
     Dates: start: 20090712, end: 20090712
  9. VANCOMYCIN [Suspect]
     Indication: ASPERGILLOSIS
     Dosage: 1 G, UID/QD, IV DRIP
     Route: 041
     Dates: start: 20090712, end: 20090712
  10. VANCOMYCIN [Suspect]
     Indication: FEBRILE NEUTROPENIA
     Dosage: 1 G, UID/QD, IV DRIP
     Route: 041
     Dates: start: 20090712, end: 20090712
  11. MAXIPIME [Concomitant]
  12. MEROPEN (MEROPENEM TRIHYDRATE) [Concomitant]
  13. LANSOPRAZOLE [Concomitant]
  14. MUCOSTA (REBAMIPIDE) [Concomitant]
  15. MINIPLANOR (ALLOPURINOL) [Concomitant]
  16. BACTRIM [Concomitant]
  17. RHYTHMY (RILMAZAFONE) [Concomitant]
  18. BROTIZOLAN (BROTIZOLAM) [Concomitant]
  19. MS CONTIN [Concomitant]
  20. CELECOXIB [Concomitant]
  21. SOLU-CORTEF [Concomitant]
  22. IDAMYCIN [Concomitant]
  23. CYTARABINE [Concomitant]
  24. LACTEC (SODIUM LACTATE) [Concomitant]

REACTIONS (20)
  - AORTIC ARTERIOSCLEROSIS [None]
  - BACTERIAL INFECTION [None]
  - BLOOD BILIRUBIN UNCONJUGATED INCREASED [None]
  - BLOOD LACTATE DEHYDROGENASE INCREASED [None]
  - CARDIAC ARREST [None]
  - CENTRAL NERVOUS SYSTEM INFECTION [None]
  - DEPRESSED LEVEL OF CONSCIOUSNESS [None]
  - ELECTROCARDIOGRAM QRS COMPLEX PROLONGED [None]
  - FEBRILE NEUTROPENIA [None]
  - HAEMOLYTIC ANAEMIA [None]
  - HAEMOSIDEROSIS [None]
  - HAEMOSTASIS [None]
  - HEPATIC STEATOSIS [None]
  - HYPERKALAEMIA [None]
  - INSOMNIA [None]
  - PULMONARY OEDEMA [None]
  - RENAL FAILURE ACUTE [None]
  - RENAL TUBULAR NECROSIS [None]
  - SEPSIS [None]
  - SHOCK [None]
